FAERS Safety Report 26208926 (Version 1)
Quarter: 2025Q4

REPORT INFORMATION
  Report Type: Spontaneous
  Country: US (occurrence: US)
  Receive Date: 20251229
  Receipt Date: 20251229
  Transmission Date: 20260117
  Serious: No
  Sender: SANOFI AVENTIS
  Company Number: US-SA-2025SA382951

PATIENT
  Sex: Female

DRUGS (5)
  1. DUPIXENT [Suspect]
     Active Substance: DUPILUMAB
     Indication: Asthma
     Dosage: 300 MG, QOW
     Route: 058
  2. VITAMIN B COMPLEX [Concomitant]
     Active Substance: CYANOCOBALAMIN\DEXPANTHENOL\NIACINAMIDE\PYRIDOXINE HYDROCHLORIDE\RIBOFLAVIN 5^-PHOSPHATE SODIUM\THIA
  3. ALBUTEROL [Concomitant]
     Active Substance: ALBUTEROL
  4. MONTELUKAST [Concomitant]
     Active Substance: MONTELUKAST
  5. NEXPLANON [Concomitant]
     Active Substance: ETONOGESTREL

REACTIONS (6)
  - Dry eye [Not Recovered/Not Resolved]
  - Inappropriate schedule of product administration [Unknown]
  - Conjunctival hyperaemia [Not Recovered/Not Resolved]
  - Rhinorrhoea [Not Recovered/Not Resolved]
  - Drug effect less than expected [Unknown]
  - Sneezing [Not Recovered/Not Resolved]
